FAERS Safety Report 4974808-8 (Version None)
Quarter: 2006Q2

REPORT INFORMATION
  Report Type: 
  Country: None (occurrence: None)
  Receive Date: 20060410
  Receipt Date: 20060328
  Transmission Date: 20061013
  Serious: Yes (Hospitalization, Other)
  Sender: FDA-Public Use
  Company Number: 2003172860BE

PATIENT
  Age: 63 Year
  Sex: Female

DRUGS (10)
  1. ZYVOX [Suspect]
     Indication: STAPHYLOCOCCAL INFECTION
     Dosage: 1200 MG (600 MG, 2 IN 1 D)
     Dates: start: 20030409, end: 20030812
  2. RIFAMPICIN [Concomitant]
  3. CIPROFLOXACIN [Concomitant]
  4. CLONIDINE [Concomitant]
  5. BISOPROLOL FUMARATE [Concomitant]
  6. AMLODIPINE [Concomitant]
  7. PANTOPRAZOLE SODIUM [Concomitant]
  8. METOCLOPRAMIDE [Concomitant]
  9. LORAZEPAM [Concomitant]
  10. NADROPARINE (NADROPARIN) [Concomitant]

REACTIONS (15)
  - BLINDNESS [None]
  - DRUG TOXICITY [None]
  - ENCEPHALOPATHY [None]
  - HAEMODIALYSIS [None]
  - HEPATIC STEATOSIS [None]
  - LACTIC ACIDOSIS [None]
  - LETHARGY [None]
  - MITOCHONDRIAL MYOPATHY [None]
  - MUSCLE ATROPHY [None]
  - MYDRIASIS [None]
  - OPTIC NEUROPATHY [None]
  - PUPILLARY REFLEX IMPAIRED [None]
  - QUADRIPARESIS [None]
  - RENAL FAILURE ACUTE [None]
  - WOUND INFECTION PSEUDOMONAS [None]
